FAERS Safety Report 21206603 (Version 1)
Quarter: 2022Q3

REPORT INFORMATION
  Report Type: Report from Study
  Country: CA (occurrence: CA)
  Receive Date: 20220812
  Receipt Date: 20220812
  Transmission Date: 20221027
  Serious: Yes (Other)
  Sender: FDA-Public Use
  Company Number: None

PATIENT
  Age: 69 Year
  Sex: Male

DRUGS (5)
  1. METHOTREXATE [Suspect]
     Active Substance: METHOTREXATE
     Indication: Product used for unknown indication
     Dosage: 1 EVERY 1 WEEKS
     Route: 058
  2. SECUKINUMAB [Suspect]
     Active Substance: SECUKINUMAB
     Indication: Ankylosing spondylitis
     Dosage: 1 EVERY 1 MONTHS
     Route: 058
  3. MELOXICAM [Concomitant]
     Active Substance: MELOXICAM
     Indication: Product used for unknown indication
     Dosage: 1 EVERY 1 DAYS
     Route: 048
  4. PREDNISONE [Concomitant]
     Active Substance: PREDNISONE
     Indication: Product used for unknown indication
     Route: 065
  5. SULFASALAZINE [Concomitant]
     Active Substance: SULFASALAZINE
     Indication: Product used for unknown indication
     Dosage: 1 EVERY 1 DAYS
     Route: 048

REACTIONS (22)
  - Arthralgia [Unknown]
  - Back pain [Unknown]
  - Bone erosion [Unknown]
  - Bone marrow oedema [Unknown]
  - Cyst [Unknown]
  - Device leakage [Unknown]
  - Exostosis [Unknown]
  - Granuloma [Unknown]
  - Incorrect dose administered [Unknown]
  - Inguinal hernia [Unknown]
  - Intervertebral disc degeneration [Unknown]
  - Intervertebral disc protrusion [Unknown]
  - Joint ankylosis [Unknown]
  - Lymph node calcification [Unknown]
  - Oesophageal achalasia [Unknown]
  - Osteoarthritis [Unknown]
  - Prostatomegaly [Unknown]
  - Pulmonary fibrosis [Unknown]
  - Pulmonary mass [Unknown]
  - Radiculopathy [Unknown]
  - Spinal stenosis [Unknown]
  - Vertebral osteophyte [Unknown]
